FAERS Safety Report 11511208 (Version 2)
Quarter: 2015Q4

REPORT INFORMATION
  Report Type: Report from Study
  Country: BR (occurrence: BR)
  Receive Date: 20150915
  Receipt Date: 20151001
  Transmission Date: 20160304
  Serious: Yes (Hospitalization, Other)
  Sender: FDA-Public Use
  Company Number: PHHY2015BR110955

PATIENT
  Age: 89 Year
  Sex: Male

DRUGS (5)
  1. EXELON PATCH [Suspect]
     Active Substance: RIVASTIGMINE
     Indication: SENILE DEMENTIA
     Dosage: PATCH 10 (CM2)
     Route: 062
  2. ASPIRIN. [Concomitant]
     Active Substance: ASPIRIN
     Indication: HYPERTENSION
     Dosage: 1 DF, QD FOR MANY YEARS AND STOPPED 15 DAYS BEFORE 24 SEP 2015
     Route: 048
  3. QUETIAPINA [Concomitant]
     Active Substance: QUETIAPINE
     Indication: AGITATION
     Dosage: 1 DF (25 MG), TID STARTED APPROXIMATELY 1 AND HALF YEAR BEFORE 24 SEP 2015
     Route: 048
  4. CALTREN [Concomitant]
     Active Substance: NITRENDIPINE
     Indication: HYPERTENSION
     Dosage: 1 DF (10 MG), QD
     Route: 048
  5. GLIFAGE [Concomitant]
     Active Substance: METFORMIN HYDROCHLORIDE
     Indication: DIABETES MELLITUS
     Dosage: 1 DF (500 MG), BID STARTED FOR 3 YEARS
     Route: 048

REACTIONS (9)
  - Fall [Recovered/Resolved]
  - Application site pruritus [Not Recovered/Not Resolved]
  - Feeding disorder [Not Recovered/Not Resolved]
  - Weight decreased [Not Recovered/Not Resolved]
  - Thrombosis [Recovered/Resolved]
  - Cerebral calcification [Recovering/Resolving]
  - Mass [Recovered/Resolved]
  - Blister [Recovered/Resolved]
  - Vomiting [Recovered/Resolved]

NARRATIVE: CASE EVENT DATE: 201508
